FAERS Safety Report 12462437 (Version 2)
Quarter: 2016Q2

REPORT INFORMATION
  Report Type: Report from Study
  Country: US (occurrence: US)
  Receive Date: 20160614
  Receipt Date: 20160624
  Transmission Date: 20160815
  Serious: Yes (Hospitalization)
  Sender: FDA-Public Use
  Company Number: US-TAIHO ONCOLOGY INC-EU-2016-01221

PATIENT
  Sex: Female

DRUGS (1)
  1. LONSURF [Suspect]
     Active Substance: TIPIRACIL HYDROCHLORIDE\TRIFLURIDINE
     Dosage: START DATE, DOSAGE AND FREQUENCY UNKNOWN
     Route: 048

REACTIONS (3)
  - Splenic embolism [Unknown]
  - White blood cell count decreased [Unknown]
  - Platelet count decreased [Unknown]
